FAERS Safety Report 9140250 (Version 2)
Quarter: 2013Q1

REPORT INFORMATION
  Report Type: Spontaneous
  Country: US (occurrence: US)
  Receive Date: 20130305
  Receipt Date: 20130318
  Transmission Date: 20140127
  Serious: No
  Sender: FDA-Public Use
  Company Number: US-PFIZER INC-2013071684

PATIENT
  Age: 76 Year
  Sex: Male
  Weight: 81.6 kg

DRUGS (3)
  1. METAXALONE [Suspect]
     Indication: MUSCLE SPASMS
     Dosage: UNK, AS NEEDED
     Dates: start: 201209, end: 201302
  2. SYMBICORT [Concomitant]
     Dosage: 160/4.5 MG TWO PUFFS, 2X/DAY
  3. TUDORZA [Concomitant]
     Dosage: UNK

REACTIONS (2)
  - Drug ineffective [Unknown]
  - Muscle spasms [Unknown]
